FAERS Safety Report 4915153-6 (Version None)
Quarter: 2006Q1

REPORT INFORMATION
  Report Type: 
  Country: None (occurrence: None)
  Receive Date: 20060216
  Receipt Date: 20060216
  Transmission Date: 20060701
  Serious: Yes (Hospitalization)
  Sender: FDA-Public Use
  Company Number: None

PATIENT
  Sex: Male
  Weight: 66.2252 kg

DRUGS (15)
  1. ATENOLOL [Suspect]
     Indication: HYPERTENSION
     Dosage: 100 MG PO QD - PRIOR TO ADMISSION
     Route: 048
  2. AMITRIPTYLINE HCL [Concomitant]
  3. PREVACID [Concomitant]
  4. LIPITOR [Concomitant]
  5. LASIX [Concomitant]
  6. LEVAQUIN [Concomitant]
  7. CLONIDINE [Concomitant]
  8. ASPIRIN [Concomitant]
  9. SYNTHROID [Concomitant]
  10. DARVOCET [Concomitant]
  11. CARDURA [Concomitant]
  12. NORVASC [Concomitant]
  13. ACTOS [Concomitant]
  14. ISOSORBIDE [Concomitant]
  15. GLUCOTROL [Concomitant]

REACTIONS (2)
  - DEHYDRATION [None]
  - HYPOTENSION [None]
